FAERS Safety Report 7535698-2 (Version None)
Quarter: 2011Q2

REPORT INFORMATION
  Report Type: 
  Country: None (occurrence: None)
  Receive Date: 20110602
  Receipt Date: 20110524
  Transmission Date: 20111010
  Serious: Yes (Hospitalization)
  Sender: FDA-Public Use
  Company Number: DOXY20110001

PATIENT
  Age: 49 Year
  Sex: Male

DRUGS (2)
  1. DOXYCYCLINE HYCLATE [Suspect]
     Indication: OROPHARYNGEAL PAIN
     Dosage: , ORAL
     Route: 048
  2. DOXYCYCLINE HYCLATE [Suspect]
     Indication: COUGH
     Dosage: , ORAL
     Route: 048

REACTIONS (2)
  - ULCERATIVE KERATITIS [None]
  - STEVENS-JOHNSON SYNDROME [None]
